FAERS Safety Report 6187995-3 (Version None)
Quarter: 2009Q2

REPORT INFORMATION
  Report Type: 
  Country: None (occurrence: None)
  Receive Date: 20090511
  Receipt Date: 20090511
  Transmission Date: 20091009
  Serious: Yes (Hospitalization, Disabling)
  Sender: FDA-Public Use
  Company Number: None

PATIENT
  Age: 82 Year
  Sex: Female
  Weight: 103 kg

DRUGS (8)
  1. AZTREONAM [Suspect]
     Indication: SEPSIS
     Dosage: 1GM Q8H IV
     Route: 042
     Dates: start: 20090325, end: 20090401
  2. ASPIRIN [Concomitant]
  3. CLOPIDOGREL [Concomitant]
  4. FLUCONAZOLE [Concomitant]
  5. PANTOPRAZOLE SODIUM [Concomitant]
  6. LEVAQUIN [Concomitant]
  7. HYDRALAZINE HCL [Concomitant]
  8. SENNA [Concomitant]

REACTIONS (3)
  - DRUG ERUPTION [None]
  - EXFOLIATIVE RASH [None]
  - PAIN [None]
